FAERS Safety Report 8992657 (Version 2)
Quarter: 2013Q2

REPORT INFORMATION
  Report Type: Spontaneous
  Country: FR (occurrence: FR)
  Receive Date: 20130101
  Receipt Date: 20130530
  Transmission Date: 20140414
  Serious: Yes (Other)
  Sender: FDA-Public Use
  Company Number: FR-UCBSA-065740

PATIENT
  Age: 38 Year
  Sex: Female
  Weight: 74 kg

DRUGS (1)
  1. KEPPRA [Suspect]
     Indication: EPILEPSY
     Dosage: DAILY DOSE : 2000 MG
     Route: 048
     Dates: start: 2011

REACTIONS (2)
  - Pregnancy on contraceptive [Recovered/Resolved]
  - Pregnancy [Recovered/Resolved]
